FAERS Safety Report 24065100 (Version 4)
Quarter: 2025Q1

REPORT INFORMATION
  Report Type: Spontaneous
  Country: US (occurrence: US)
  Receive Date: 20240709
  Receipt Date: 20250129
  Transmission Date: 20250409
  Serious: No
  Sender: LEO PHARM
  Company Number: US-LEO Pharma-371784

PATIENT
  Age: 39 Year
  Sex: Male

DRUGS (3)
  1. ADBRY [Suspect]
     Active Substance: TRALOKINUMAB-LDRM
     Indication: Eczema
     Dates: start: 202405, end: 20240613
  2. levocetirizine dihydrochloride (Xyzal) [Concomitant]
     Indication: Product used for unknown indication
  3. ruxolitinib phosphate (Opzelura) [Concomitant]
     Indication: Product used for unknown indication

REACTIONS (3)
  - Injection site pruritus [Recovered/Resolved]
  - Injection site inflammation [Recovered/Resolved]
  - Injection site induration [Recovered/Resolved]
